FAERS Safety Report 5621042-4 (Version None)
Quarter: 2008Q1

REPORT INFORMATION
  Report Type: 
  Country: None (occurrence: None)
  Receive Date: 20080208
  Receipt Date: 20080130
  Transmission Date: 20080703
  Serious: Yes (Death)
  Sender: FDA-Public Use
  Company Number: US-PFIZER INC-2008010424

PATIENT
  Sex: Male

DRUGS (2)
  1. CHANTIX [Suspect]
  2. ANTIPSYCHOTICS [Concomitant]

REACTIONS (1)
  - DEATH [None]
